FAERS Safety Report 24018258 (Version 3)
Quarter: 2024Q4

REPORT INFORMATION
  Report Type: Spontaneous
  Country: US (occurrence: US)
  Receive Date: 20240627
  Receipt Date: 20241213
  Transmission Date: 20250115
  Serious: No
  Sender: MICRO LABS
  Company Number: US-862174955-ML2024-03599

PATIENT
  Sex: Male

DRUGS (1)
  1. DORZOLAMIDE HYDROCHLORIDE\TIMOLOL MALEATE [Suspect]
     Active Substance: DORZOLAMIDE HYDROCHLORIDE\TIMOLOL MALEATE
     Indication: Glaucoma
     Dosage: STRENGTH: 2%/0.5%
     Route: 047

REACTIONS (2)
  - Ocular hyperaemia [Unknown]
  - Product container issue [Unknown]
